FAERS Safety Report 19390687 (Version 1)
Quarter: 2021Q2

REPORT INFORMATION
  Report Type: Spontaneous
  Country: US (occurrence: US)
  Receive Date: 20210608
  Receipt Date: 20210608
  Transmission Date: 20210717
  Serious: Yes (Hospitalization, Other)
  Sender: FDA-Public Use
  Company Number: US-PURDUE-USA-2021-0268912

PATIENT
  Sex: Female

DRUGS (20)
  1. BUPRENORPHINE. [Concomitant]
     Active Substance: BUPRENORPHINE
     Dosage: 8 MG, DAILY [(DAY 3) 4 MG BID]
  2. NON?PMN MORPHINE SULFATE [Suspect]
     Active Substance: MORPHINE SULFATE
     Indication: CHEST PAIN
     Dosage: 4 MG, Q4H PRN [AS NEEDED]
     Route: 042
  3. BUPRENORPHINE. [Concomitant]
     Active Substance: BUPRENORPHINE
     Indication: CHEST PAIN
     Dosage: 24 MG, DAILY [(DAY 16) 8 MG TID]
  4. BUPRENORPHINE. [Concomitant]
     Active Substance: BUPRENORPHINE
     Dosage: 24 MG, DAILY [(DAY 12) 8 MG TID]
  5. CEFAZOLIN [Concomitant]
     Active Substance: CEFAZOLIN
     Indication: OSTEOMYELITIS
     Dosage: UNK
     Route: 042
  6. NON?PMN MORPHINE SULFATE [Suspect]
     Active Substance: MORPHINE SULFATE
     Dosage: 16 MG, UNK
     Route: 042
  7. BUPRENORPHINE. [Concomitant]
     Active Substance: BUPRENORPHINE
     Dosage: 24 MG, DAILY [(DAY 10) 8 MG TID]
  8. BUPRENORPHINE. [Concomitant]
     Active Substance: BUPRENORPHINE
     Dosage: 8 MG, DAILY [(DAY 6) 4 MG BID]
  9. VANCOMYCIN [Concomitant]
     Active Substance: VANCOMYCIN
     Indication: OSTEOMYELITIS
     Dosage: UNK
     Route: 042
  10. BUPRENORPHINE. [Concomitant]
     Active Substance: BUPRENORPHINE
     Dosage: 8 MG, DAILY [(DAY 7) 4 MG BID]
  11. BUPRENORPHINE. [Concomitant]
     Active Substance: BUPRENORPHINE
     Dosage: 8 MG, DAILY [(DAY 4) 4 MG BID]
  12. BUPRENORPHINE. [Concomitant]
     Active Substance: BUPRENORPHINE
     Dosage: 3 MG, DAILY [1 MG AM AND 2MG PM (DAY 2)]
  13. BUPRENORPHINE. [Concomitant]
     Active Substance: BUPRENORPHINE
     Dosage: 24 MG, DAILY [(DAY 11) 8 MG TID]
  14. BUPRENORPHINE. [Concomitant]
     Active Substance: BUPRENORPHINE
     Dosage: 24 MG, DAILY [(DAY 9) 8 MG TID]
  15. BUPRENORPHINE. [Concomitant]
     Active Substance: BUPRENORPHINE
     Dosage: 1 MG, DAILY [DAY 1]
  16. BUPRENORPHINE. [Concomitant]
     Active Substance: BUPRENORPHINE
     Dosage: 24 MG, DAILY [(DAY 15) 8 MG TID]
  17. BUPRENORPHINE. [Concomitant]
     Active Substance: BUPRENORPHINE
     Dosage: 24 MG, DAILY [(DAY 14) 8 MG TID]
  18. BUPRENORPHINE. [Concomitant]
     Active Substance: BUPRENORPHINE
     Dosage: 24 MG, DAILY [(DAY 13) 8 MG TID]
  19. BUPRENORPHINE. [Concomitant]
     Active Substance: BUPRENORPHINE
     Dosage: 8 MG, BID[(DAY 8) 4 MG BID]
  20. BUPRENORPHINE. [Concomitant]
     Active Substance: BUPRENORPHINE
     Dosage: 8 MG, DAILY [(DAY 5) 4 MG BID]

REACTIONS (13)
  - Mydriasis [Recovered/Resolved]
  - Lacrimation increased [Recovered/Resolved]
  - Hot flush [Not Recovered/Not Resolved]
  - Drug withdrawal syndrome [Not Recovered/Not Resolved]
  - Agitation [Recovered/Resolved]
  - Anxiety [Not Recovered/Not Resolved]
  - Restless legs syndrome [Recovered/Resolved]
  - Chest pain [Unknown]
  - Diarrhoea [Unknown]
  - Gastrointestinal pain [Unknown]
  - Piloerection [Recovered/Resolved]
  - Sneezing [Recovered/Resolved]
  - Rhinorrhoea [Recovered/Resolved]
